FAERS Safety Report 4282497-3 (Version None)
Quarter: 2004Q1

REPORT INFORMATION
  Report Type: 
  Country: None (occurrence: None)
  Receive Date: 20040129
  Receipt Date: 20040119
  Transmission Date: 20041129
  Serious: Yes (Hospitalization, Other)
  Sender: FDA-Public Use
  Company Number: HQWYE206425JUL03

PATIENT
  Age: 79 Year
  Sex: Male
  Weight: 174 kg

DRUGS (14)
  1. CORDARONE [Suspect]
     Dosage: UNSPECIFIED DOSE
     Dates: start: 19980924, end: 20030921
  2. TAREG (VALSARTAN, ) [Suspect]
     Indication: ESSENTIAL HYPERTENSION
     Dosage: BLINDED STUDY REGIMEN 1
     Dates: start: 19990122
  3. TAREG (VALSARTAN) [Suspect]
     Dosage: BLINDED STUDY REGIMEN 2,;BLINDED STUDY REGIMEN 3
     Dates: end: 20030217
  4. TAREG (VALSARTAN) [Suspect]
     Dosage: BLINDED STUDY REGIMEN 2,;BLINDED STUDY REGIMEN 3
     Dates: start: 20030320, end: 20030921
  5. MEVACOR [Concomitant]
  6. LASIX [Concomitant]
  7. GLUCOPHAGE [Concomitant]
  8. ASPIRIN [Concomitant]
  9. FOLIC ACID [Concomitant]
  10. SIMVASTATIN [Concomitant]
  11. TIMOLOL MALEATE [Concomitant]
  12. ALPHAGAN [Concomitant]
  13. MOTRIN [Concomitant]
  14. TIAZAC [Concomitant]

REACTIONS (13)
  - ASCITES [None]
  - BENIGN PROSTATIC HYPERPLASIA [None]
  - BLOOD ALBUMIN DECREASED [None]
  - BLOOD CREATINE PHOSPHOKINASE MB INCREASED [None]
  - CARCINOEMBRYONIC ANTIGEN INCREASED [None]
  - HEART RATE DECREASED [None]
  - HEPATIC ENZYME INCREASED [None]
  - HEPATOTOXICITY [None]
  - HYPERKALAEMIA [None]
  - NODAL RHYTHM [None]
  - PHLEBOLITH [None]
  - PLEURAL EFFUSION [None]
  - PROSTATIC SPECIFIC ANTIGEN INCREASED [None]
